FAERS Safety Report 12140333 (Version 1)
Quarter: 2016Q1

REPORT INFORMATION
  Report Type: Spontaneous
  Country: DE (occurrence: DE)
  Receive Date: 20160303
  Receipt Date: 20160303
  Transmission Date: 20160526
  Serious: Yes (Hospitalization)
  Sender: FDA-Public Use
  Company Number: DE-AMGEN-DEUSP2016019846

PATIENT
  Age: 64 Year
  Sex: Female

DRUGS (6)
  1. CYCLOPHOSPHAMIDE. [Concomitant]
     Active Substance: CYCLOPHOSPHAMIDE
     Indication: BREAST CANCER
     Dosage: 100 MG, UNK
     Route: 042
     Dates: start: 20150129, end: 20160209
  2. PALONOSETRON [Concomitant]
     Active Substance: PALONOSETRON
     Indication: ANTIEMETIC SUPPORTIVE CARE
     Dosage: 0.25 MG, UNK
     Route: 042
     Dates: start: 20151229, end: 20160209
  3. DEXA                               /00016001/ [Concomitant]
     Active Substance: DEXAMETHASONE
     Indication: ANTIEMETIC SUPPORTIVE CARE
     Dosage: 8 MG, UNK
     Route: 042
     Dates: start: 20151229, end: 20160209
  4. APREPITANT. [Concomitant]
     Active Substance: APREPITANT
     Indication: ANTIEMETIC SUPPORTIVE CARE
     Dosage: 125/80/80 UNK, UNK
     Route: 048
     Dates: start: 20151229, end: 20160211
  5. EPIRUBICIN [Concomitant]
     Active Substance: EPIRUBICIN
     Indication: BREAST CANCER
     Dosage: 170 MG, UNK
     Route: 042
     Dates: start: 20151229, end: 20160209
  6. NEULASTA [Suspect]
     Active Substance: PEGFILGRASTIM
     Indication: BREAST CANCER
     Dosage: 6 MG, UNK
     Route: 058
     Dates: start: 20160120

REACTIONS (1)
  - White blood cell count decreased [Recovering/Resolving]

NARRATIVE: CASE EVENT DATE: 20160216
